FAERS Safety Report 25147648 (Version 2)
Quarter: 2025Q2

REPORT INFORMATION
  Report Type: Spontaneous
  Country: US (occurrence: US)
  Receive Date: 20250402
  Receipt Date: 20250514
  Transmission Date: 20250716
  Serious: Yes (Other)
  Sender: NOVO NORDISK
  Company Number: US-NOVOPROD-1398126

PATIENT
  Age: 64 Year
  Sex: Male
  Weight: 107.94 kg

DRUGS (1)
  1. OZEMPIC [Suspect]
     Active Substance: SEMAGLUTIDE
     Indication: Product used for unknown indication

REACTIONS (2)
  - Optic ischaemic neuropathy [Unknown]
  - Visual impairment [Unknown]

NARRATIVE: CASE EVENT DATE: 20240901
